FAERS Safety Report 19004545 (Version 3)
Quarter: 2021Q4

REPORT INFORMATION
  Report Type: Spontaneous
  Country: US (occurrence: US)
  Receive Date: 20210312
  Receipt Date: 20211202
  Transmission Date: 20220303
  Serious: No
  Sender: FDA-Public Use
  Company Number: US-PFIZER INC-2021257792

PATIENT
  Age: 59 Year
  Sex: Female

DRUGS (8)
  1. BOSULIF [Suspect]
     Active Substance: BOSUTINIB MONOHYDRATE
     Indication: Chronic myeloid leukaemia
     Dosage: 400 MG, 1X/DAY
     Route: 048
     Dates: start: 201712
  2. AMLODIPINE BESYLATE [Concomitant]
     Active Substance: AMLODIPINE BESYLATE
     Dosage: UNK
  3. RAMIPRIL [Concomitant]
     Active Substance: RAMIPRIL
     Dosage: UNK
  4. BYSTOLIC [Concomitant]
     Active Substance: NEBIVOLOL HYDROCHLORIDE
     Dosage: UNK
  5. SIMVASTATIN [Concomitant]
     Active Substance: SIMVASTATIN
     Dosage: UNK
  6. COUMADIN [Concomitant]
     Active Substance: WARFARIN SODIUM
     Dosage: UNK
  7. OMEPRAZOLE [Concomitant]
     Active Substance: OMEPRAZOLE
     Dosage: UNK
  8. LASIX [Concomitant]
     Active Substance: FUROSEMIDE
     Dosage: UNK

REACTIONS (10)
  - Urine output decreased [Unknown]
  - Back pain [Unknown]
  - Fatigue [Unknown]
  - Peripheral swelling [Unknown]
  - Dyspnoea [Unknown]
  - Pollakiuria [Unknown]
  - Eructation [Unknown]
  - Abdominal discomfort [Unknown]
  - Insomnia [Unknown]
  - Product dose omission issue [Unknown]
